FAERS Safety Report 7182942-X (Version None)
Quarter: 2010Q4

REPORT INFORMATION
  Report Type: 
  Country: None (occurrence: None)
  Receive Date: 20101210
  Receipt Date: 20101201
  Transmission Date: 20110411
  Serious: Yes (Death)
  Sender: FDA-Public Use
  Company Number: 771383

PATIENT
  Sex: Female

DRUGS (3)
  1. OXALIPLATIN [Suspect]
     Indication: COLON CANCER
     Dosage: 149 MG MILLIGRAM(S)
     Dates: start: 20100629, end: 20100830
  2. FLUOROURACIL [Suspect]
     Indication: COLON CANCER
     Dosage: 4224 MG MILLIGRAM(S)
     Dates: start: 20100629, end: 20100830
  3. NEUPOGEN [Concomitant]

REACTIONS (2)
  - ABDOMINAL SEPSIS [None]
  - NEUTROPENIA [None]
